FAERS Safety Report 7780429-4 (Version None)
Quarter: 2011Q3

REPORT INFORMATION
  Report Type: 
  Country: None (occurrence: None)
  Receive Date: 20110927
  Receipt Date: 20110919
  Transmission Date: 20111222
  Serious: Yes (Other)
  Sender: FDA-Public Use
  Company Number: FR-PFIZER INC-2011221430

PATIENT
  Age: 22 Month
  Sex: Male

DRUGS (11)
  1. BENEFIX [Suspect]
     Dosage: 1000 IU, 1X/DAY
     Dates: start: 20110817, end: 20110817
  2. BENEFIX [Suspect]
     Dosage: 1000 IU, 1X/DAY
     Dates: start: 20110812, end: 20110812
  3. BENEFIX [Suspect]
  4. BENEFIX [Suspect]
     Dosage: 1000 IU, 1X/DAY
     Dates: start: 20110819, end: 20110819
  5. BENEFIX [Suspect]
     Indication: FACTOR IX DEFICIENCY
     Dosage: 1000 IU, 1X/DAY
     Dates: start: 20110808, end: 20110808
  6. BENEFIX [Suspect]
     Dosage: 1000 IU, 1X/DAY
     Dates: start: 20110810, end: 20110810
  7. BENEFIX [Suspect]
     Dosage: 1000 IU, 1X/DAY
     Dates: start: 20110822, end: 20110822
  8. BENEFIX [Suspect]
     Dosage: 1000 IU, 2X/WEEK
     Dates: start: 20110801, end: 20110914
  9. BENEFIX [Suspect]
     Indication: HAEMARTHROSIS
     Dosage: 1000 IU, 1X/DAY
     Dates: start: 20110806, end: 20110806
  10. BENEFIX [Suspect]
     Dosage: 1000 IU, 1X/DAY
     Dates: start: 20110815, end: 20110815
  11. BENEFIX [Suspect]

REACTIONS (1)
  - FACTOR IX INHIBITION [None]
